FAERS Safety Report 18234353 (Version 2)
Quarter: 2020Q4

REPORT INFORMATION
  Report Type: Spontaneous
  Country: JP (occurrence: JP)
  Receive Date: 20200904
  Receipt Date: 20201021
  Transmission Date: 20210113
  Serious: Yes (Other)
  Sender: FDA-Public Use
  Company Number: JP-EISAI MEDICAL RESEARCH-EC-2020-079878

PATIENT
  Sex: Female

DRUGS (1)
  1. DAYVIGO [Suspect]
     Active Substance: LEMBOREXANT
     Indication: INSOMNIA
     Dosage: DOSE AND FREQUENCY UNKNOWN
     Route: 048
     Dates: start: 20200722, end: 20200724

REACTIONS (1)
  - Hallucination, visual [Recovered/Resolved]

NARRATIVE: CASE EVENT DATE: 20200722
